FAERS Safety Report 8546396-0 (Version None)
Quarter: 2012Q3

REPORT INFORMATION
  Report Type: 
  Country: None (occurrence: None)
  Receive Date: 20120727
  Receipt Date: 20120104
  Transmission Date: 20120928
  Serious: No
  Sender: FDA-Public Use
  Company Number: US-ASTRAZENECA-2012SE00880

PATIENT
  Age: 63 Year
  Sex: Male

DRUGS (1)
  1. SEROQUEL [Suspect]
     Route: 048

REACTIONS (4)
  - FRONTOTEMPORAL DEMENTIA [None]
  - DEPRESSION [None]
  - DEMENTIA ALZHEIMER'S TYPE [None]
  - PSYCHOTIC DISORDER [None]
